FAERS Safety Report 7905897 (Version 6)
Quarter: 2014Q1

REPORT INFORMATION
  Report Type: Spontaneous
  Country: US (occurrence: US)
  Receive Date: 20110420
  Receipt Date: 20140318
  Transmission Date: 20141002
  Serious: Yes (Other)
  Sender: FDA-Public Use
  Company Number: US-BAYER-2011-033924

PATIENT
  Age: 22 Year
  Sex: Female
  Weight: 72.56 kg

DRUGS (7)
  1. YASMIN [Suspect]
     Indication: ACNE
     Dosage: UNK
     Route: 048
     Dates: start: 200001, end: 200601
  2. YASMIN [Suspect]
     Indication: PREMENSTRUAL SYNDROME
     Dosage: UNK
     Dates: start: 1997
  3. YAZ [Suspect]
     Indication: ACNE
     Dosage: UNK
     Route: 048
     Dates: start: 200001, end: 200601
  4. YAZ [Suspect]
     Indication: PREMENSTRUAL SYNDROME
     Dosage: UNK
     Dates: start: 1997
  5. NEXIUM [Concomitant]
     Dosage: 40 MG, UNK
     Route: 048
  6. SYNTHROID [Concomitant]
     Route: 048
  7. ZITHROMAX [Concomitant]

REACTIONS (10)
  - Cholecystitis chronic [None]
  - Cholecystectomy [None]
  - Abortion spontaneous [None]
  - Habitual abortion [None]
  - Injury [None]
  - Pain [None]
  - General physical health deterioration [None]
  - Anxiety [None]
  - Anhedonia [None]
  - Emotional distress [None]
